FAERS Safety Report 15352793 (Version 2)
Quarter: 2018Q3

REPORT INFORMATION
  Report Type: Spontaneous
  Country: CA (occurrence: CA)
  Receive Date: 20180905
  Receipt Date: 20180928
  Transmission Date: 20181010
  Serious: Yes (Hospitalization, Other)
  Sender: FDA-Public Use
  Company Number: CA-TEVA-2018-CA-950723

PATIENT
  Sex: Female

DRUGS (3)
  1. PURINETHOL [Interacting]
     Active Substance: MERCAPTOPURINE
     Route: 065
  2. METHOTREXATE. [Suspect]
     Active Substance: METHOTREXATE
     Route: 065
  3. TEVA?AZATHIOPRINE [Interacting]
     Active Substance: AZATHIOPRINE
     Indication: CROHN^S DISEASE
     Route: 065

REACTIONS (21)
  - Mucosal haemorrhage [Unknown]
  - Quality of life decreased [Unknown]
  - Road traffic accident [Unknown]
  - Chronic disease [Unknown]
  - Oesophageal pain [Unknown]
  - Injury [Unknown]
  - Anxiety [Unknown]
  - Ill-defined disorder [Unknown]
  - Erosive oesophagitis [Unknown]
  - Gastritis erosive [Unknown]
  - Off label use [Unknown]
  - Erythema [Unknown]
  - Abdominal pain upper [Unknown]
  - Chronic fatigue syndrome [Unknown]
  - Haematemesis [Unknown]
  - Abdominal pain [Unknown]
  - Potentiating drug interaction [Unknown]
  - Pancreatitis [Unknown]
  - Hypersensitivity [Unknown]
  - Pain [Unknown]
  - Vomiting [Unknown]

NARRATIVE: CASE EVENT DATE: 200503
